FAERS Safety Report 5204554-7 (Version None)
Quarter: 2007Q1

REPORT INFORMATION
  Report Type: 
  Country: None (occurrence: None)
  Receive Date: 20070110
  Receipt Date: 20060505
  Transmission Date: 20070707
  Serious: No
  Sender: FDA-Public Use
  Company Number: US-BRISTOL-MYERS SQUIBB COMPANY-13369392

PATIENT
  Sex: Male
  Weight: 45 kg

DRUGS (3)
  1. ABILIFY [Suspect]
     Indication: OBSESSIVE-COMPULSIVE DISORDER
     Dates: start: 20040101
  2. ABILIFY [Suspect]
     Indication: AUTISM
     Dates: start: 20040101
  3. LEXAPRO [Concomitant]

REACTIONS (1)
  - NEUROLEPTIC MALIGNANT SYNDROME [None]
